FAERS Safety Report 14327197 (Version 1)
Quarter: 2017Q4

REPORT INFORMATION
  Report Type: Report from Study
  Country: GB (occurrence: GB)
  Receive Date: 20171227
  Receipt Date: 20171227
  Transmission Date: 20180321
  Serious: Yes (Death)
  Sender: FDA-Public Use
  Company Number: PHHY2017GB162195

PATIENT
  Age: 44 Year
  Sex: Male
  Weight: 91.1 kg

DRUGS (1)
  1. COSENTYX [Suspect]
     Active Substance: SECUKINUMAB
     Indication: PSORIASIS
     Dosage: 300 MG, UNK
     Route: 065
     Dates: start: 20160209

REACTIONS (3)
  - Aortic dissection [Fatal]
  - Aortic arteriosclerosis [Fatal]
  - Pericardial haemorrhage [Fatal]
